FAERS Safety Report 15438540 (Version 1)
Quarter: 2018Q3

REPORT INFORMATION
  Report Type: Report from Study
  Country: US (occurrence: US)
  Receive Date: 20180928
  Receipt Date: 20180928
  Transmission Date: 20181010
  Serious: No
  Sender: FDA-Public Use
  Company Number: PHHY2018US109033

PATIENT
  Sex: Male
  Weight: 124.3 kg

DRUGS (2)
  1. ENTRESTO [Suspect]
     Active Substance: SACUBITRIL\VALSARTAN
     Indication: PRODUCT USED FOR UNKNOWN INDICATION
     Dosage: (SACUBITRIL 49 MG/ VALSARTAN 51 MG)
     Route: 065
  2. ENTRESTO [Suspect]
     Active Substance: SACUBITRIL\VALSARTAN
     Dosage: (SACUBITRIL 97 MG/ VALSARTAN 103 MG)UNK
     Route: 065

REACTIONS (1)
  - Weight decreased [Unknown]
